FAERS Safety Report 24683659 (Version 2)
Quarter: 2024Q4

REPORT INFORMATION
  Report Type: Spontaneous
  Country: US (occurrence: US)
  Receive Date: 20241202
  Receipt Date: 20241206
  Transmission Date: 20250114
  Serious: Yes (Hospitalization, Other)
  Sender: BRISTOL-MYERS SQUIBB COMPANY
  Company Number: US-BRISTOL-MYERS SQUIBB COMPANY-2024-183207

PATIENT

DRUGS (1)
  1. BREYANZI [Suspect]
     Active Substance: LISOCABTAGENE MARALEUCEL
     Indication: B-cell lymphoma
     Dosage: DOSE : UNAVAILABLE;     FREQ : ONE TIME INFUSION
     Route: 042
     Dates: start: 202411

REACTIONS (2)
  - Hypoxia [Unknown]
  - Cytokine release syndrome [Recovered/Resolved]
